FAERS Safety Report 9115351 (Version 1)
Quarter: 2013Q1

REPORT INFORMATION
  Report Type: Spontaneous
  Country: US (occurrence: None)
  Receive Date: 20130128
  Receipt Date: 20130128
  Transmission Date: 20140127
  Serious: Yes (Hospitalization)
  Sender: FDA-Public Use
  Company Number: 2013AP000134

PATIENT
  Age: 50 Year
  Sex: Female
  Weight: 77.11 kg

DRUGS (7)
  1. TRIAMTERENE AND HYDROCHLOROTHIAZIDE TABLETS, USP [Suspect]
     Dates: start: 2005
  2. METOPROLOL [Suspect]
     Dates: start: 2010
  3. ASPIRIN [Suspect]
     Dates: start: 2003
  4. AMLODIPINE BESYLATE TABLETS [Suspect]
  5. RANITIDINE HYDROCHLORIDE [Concomitant]
  6. CETRIZINE [Concomitant]
  7. CALCIUM CARBONATE [Concomitant]

REACTIONS (5)
  - Joint swelling [None]
  - Pain [None]
  - Hypertension [None]
  - Blood thyroid stimulating hormone abnormal [None]
  - Anaemia [None]
